FAERS Safety Report 21523845 (Version 2)
Quarter: 2022Q4

REPORT INFORMATION
  Report Type: Spontaneous
  Country: ES (occurrence: ES)
  Receive Date: 20221029
  Receipt Date: 20221111
  Transmission Date: 20230112
  Serious: Yes (Death, Other)
  Sender: FDA-Public Use
  Company Number: ES-AMGEN-ESPSP2022182315

PATIENT

DRUGS (8)
  1. TRASTUZUMAB [Suspect]
     Active Substance: TRASTUZUMAB
     Indication: Breast cancer metastatic
     Dosage: UNK
     Route: 065
  2. TRASTUZUMAB [Suspect]
     Active Substance: TRASTUZUMAB
     Indication: HER2 positive breast cancer
  3. PERTUZUMAB [Suspect]
     Active Substance: PERTUZUMAB
     Indication: Breast cancer metastatic
     Dosage: UNK
     Route: 065
  4. PERTUZUMAB [Suspect]
     Active Substance: PERTUZUMAB
     Indication: HER2 positive breast cancer
  5. PACLITAXEL [Suspect]
     Active Substance: PACLITAXEL
     Indication: Breast cancer metastatic
     Dosage: UNK
     Route: 065
  6. PACLITAXEL [Suspect]
     Active Substance: PACLITAXEL
     Indication: HER2 positive breast cancer
  7. CARBOPLATIN [Suspect]
     Active Substance: CARBOPLATIN
     Indication: HER2 positive breast cancer
     Dosage: UNK
     Route: 065
  8. CARBOPLATIN [Suspect]
     Active Substance: CARBOPLATIN
     Indication: Breast cancer metastatic

REACTIONS (16)
  - Pancytopenia [Unknown]
  - Cytopenia [Unknown]
  - Neurotoxicity [Unknown]
  - Sepsis [Fatal]
  - Breast cancer [Recovered/Resolved]
  - Diarrhoea [Unknown]
  - Death [Fatal]
  - Off label use [Unknown]
  - Implant site infection [Recovered/Resolved]
  - Seroma [Recovered/Resolved]
  - Therapy partial responder [Unknown]
  - Dermatitis [Unknown]
  - Alopecia [Unknown]
  - Nausea [Unknown]
  - Mucosal inflammation [Unknown]
  - Ejection fraction decreased [Recovered/Resolved]
